FAERS Safety Report 11253401 (Version 1)
Quarter: 2015Q3

REPORT INFORMATION
  Report Type: Spontaneous
  Country: CA (occurrence: CA)
  Receive Date: 20150709
  Receipt Date: 20150709
  Transmission Date: 20151125
  Serious: Yes (Other)
  Sender: FDA-Public Use
  Company Number: CA-ROCHE-1605946

PATIENT
  Age: 39 Year
  Sex: Female

DRUGS (9)
  1. VENTOLIN [Concomitant]
     Active Substance: ALBUTEROL SULFATE
  2. KETOTIFEN [Concomitant]
     Active Substance: KETOTIFEN
  3. PREDNISONE. [Concomitant]
     Active Substance: PREDNISONE
  4. NEXIUM [Concomitant]
     Active Substance: ESOMEPRAZOLE MAGNESIUM
  5. DOXEPIN [Concomitant]
     Active Substance: DOXEPIN
  6. CETIRIZINE [Concomitant]
     Active Substance: CETIRIZINE HYDROCHLORIDE
  7. FLOVENT [Concomitant]
     Active Substance: FLUTICASONE PROPIONATE
  8. XOLAIR [Suspect]
     Active Substance: OMALIZUMAB
     Indication: ASTHMA
     Route: 058
     Dates: start: 20110321
  9. ZADITEN [Concomitant]
     Active Substance: KETOTIFEN FUMARATE

REACTIONS (14)
  - Rhinorrhoea [Unknown]
  - Heart rate increased [Unknown]
  - Nasal congestion [Unknown]
  - Respiratory tract infection [Unknown]
  - Influenza [Unknown]
  - Facial pain [Unknown]
  - Ear pain [Unknown]
  - Tremor [Unknown]
  - Urticaria [Unknown]
  - Sinusitis [Unknown]
  - Dyspnoea [Recovered/Resolved]
  - Cough [Unknown]
  - Fatigue [Unknown]
  - Asthma [Unknown]

NARRATIVE: CASE EVENT DATE: 201412
